FAERS Safety Report 19322640 (Version 2)
Quarter: 2021Q3

REPORT INFORMATION
  Report Type: Spontaneous
  Country: US (occurrence: US)
  Receive Date: 20210527
  Receipt Date: 20210815
  Transmission Date: 20211014
  Serious: Yes (Other)
  Sender: FDA-Public Use
  Company Number: US-JNJFOC-20210538556

PATIENT
  Age: 75 Year
  Sex: Female

DRUGS (7)
  1. LEVOTHYROXINE. [Concomitant]
     Active Substance: LEVOTHYROXINE
     Indication: THYROID DISORDER
  2. METOPROLOL. [Concomitant]
     Active Substance: METOPROLOL
     Indication: BLOOD PRESSURE MEASUREMENT
     Dosage: 3@50
  3. AMLODIPINE [Concomitant]
     Active Substance: AMLODIPINE BESYLATE
     Indication: BLOOD PRESSURE MEASUREMENT
  4. ROSUVASTATIN. [Concomitant]
     Active Substance: ROSUVASTATIN
     Indication: BLOOD CHOLESTEROL
  5. BALVERSA [Suspect]
     Active Substance: ERDAFITINIB
     Route: 048
     Dates: start: 20210330, end: 20210422
  6. BALVERSA [Suspect]
     Active Substance: ERDAFITINIB
     Indication: PRODUCT USED FOR UNKNOWN INDICATION
     Route: 048
     Dates: start: 20210227, end: 20210315
  7. POTASSIUM [Concomitant]
     Active Substance: POTASSIUM

REACTIONS (6)
  - Hyperphosphataemia [Recovering/Resolving]
  - Alopecia [Recovering/Resolving]
  - Stomatitis [Recovering/Resolving]
  - Blindness [Recovering/Resolving]
  - Onychoclasis [Recovering/Resolving]
  - Corneal disorder [Recovering/Resolving]

NARRATIVE: CASE EVENT DATE: 20210307
